FAERS Safety Report 8997275 (Version 4)
Quarter: 2013Q1

REPORT INFORMATION
  Report Type: Spontaneous
  Country: BR (occurrence: BR)
  Receive Date: 20130104
  Receipt Date: 20130211
  Transmission Date: 20140127
  Serious: Yes (Death)
  Sender: FDA-Public Use
  Company Number: BR-PFIZER INC-2013002379

PATIENT
  Age: 67 Year
  Sex: Female
  Weight: 52 kg

DRUGS (9)
  1. OLMETEC HCT [Suspect]
     Indication: HYPERTENSION
     Dosage: 40MG/ 25MG, 1X/DAY
     Route: 048
     Dates: start: 20100412, end: 20120131
  2. NORVASC [Suspect]
     Indication: HYPERTENSION
     Dosage: 5 MG, 1X/DAY
     Route: 048
     Dates: start: 20100412, end: 20120131
  3. OLMETEC [Suspect]
     Dosage: 40 MG, UNK
     Dates: start: 20120131
  4. FUROSEMIDE [Suspect]
     Dosage: 40 MG, UNK
     Dates: start: 20120131
  5. TAPAZOL [Concomitant]
     Dosage: 10 MG, UNK
     Dates: start: 20110411
  6. SELOKEN [Concomitant]
     Dosage: MID
     Dates: start: 20100412
  7. ATENSINA [Concomitant]
     Dosage: 0.15 MG, 2X/DAY
     Dates: start: 20100412
  8. COMBIRON FOLIC [Concomitant]
     Dosage: UNK
     Dates: start: 20120131
  9. AAS [Concomitant]
     Dosage: 100 MG, UNK
     Dates: start: 20100412

REACTIONS (1)
  - Renal disorder [Fatal]
